FAERS Safety Report 6925369-5 (Version None)
Quarter: 2010Q3

REPORT INFORMATION
  Report Type: 
  Country: None (occurrence: None)
  Receive Date: 20100816
  Receipt Date: 20100806
  Transmission Date: 20110219
  Serious: Yes (Life-Threatening, Hospitalization)
  Sender: FDA-Public Use
  Company Number: GB-MILLENNIUM PHARMACEUTICALS, INC.-2010-04220

PATIENT

DRUGS (11)
  1. VELCADE [Suspect]
     Indication: MULTIPLE MYELOMA
     Dosage: 2.1 MG, CYCLIC
     Route: 042
     Dates: start: 20100427, end: 20100701
  2. FENTANYL [Concomitant]
     Indication: PAIN
     Dosage: UNK
     Dates: end: 20100809
  3. DOMPERIDONE [Concomitant]
     Indication: NAUSEA
     Dosage: 10 MG, UNK
  4. DEXAMETHASONE [Concomitant]
     Indication: MULTIPLE MYELOMA
     Dosage: 20 MG, UNK
  5. OMEPRAZOLE [Concomitant]
     Dosage: 20 MG, UNK
  6. ACYCLOVIR [Concomitant]
     Dosage: 200 MG, UNK
  7. CYCLIZINE [Concomitant]
     Indication: NAUSEA
     Dosage: 50 MG, UNK
  8. CLODRONATE DISODIUM [Concomitant]
     Dosage: 1040 MG, UNK
  9. AMLODIPINE [Concomitant]
     Indication: HYPERTENSION
     Dosage: 5 MG, UNK
  10. ATORVASTATIN [Concomitant]
     Dosage: 10 MG, UNK
  11. ATENOLOL [Concomitant]
     Indication: HYPERTENSION
     Dosage: UNK

REACTIONS (3)
  - DIZZINESS [None]
  - DRUG INEFFECTIVE [None]
  - PLASMACYTOMA [None]
